FAERS Safety Report 4701872-3 (Version None)
Quarter: 2005Q2

REPORT INFORMATION
  Report Type: 
  Country: None (occurrence: None)
  Receive Date: 20050627
  Receipt Date: 20050614
  Transmission Date: 20051028
  Serious: Yes (Hospitalization, Other)
  Sender: FDA-Public Use
  Company Number: 2005062260

PATIENT
  Age: 63 Year
  Sex: Male
  Weight: 76.2043 kg

DRUGS (8)
  1. BEXTRA [Suspect]
     Indication: ARTHRALGIA
     Dosage: 20 MG (20 MG, 1 IN 1 D), ORAL
     Route: 048
  2. CELEBREX [Suspect]
     Indication: MONARTHRITIS
     Dosage: 200 MG (200 MG, 1 IN 1D), ORAL
     Route: 048
     Dates: start: 20050401
  3. MAXIDE (HYDROCHLOROTHIAZIDE, TRIAMTERENE) [Concomitant]
  4. VERELAN (VERAPAMIL HYDROCHLORIDE) [Concomitant]
  5. ASACOL (MESALAZINED) [Concomitant]
  6. PROTONIX [Concomitant]
  7. QUININE SULFATE [Concomitant]
  8. VITAMINS (VITAMINS) [Concomitant]

REACTIONS (7)
  - CAROTID ARTERY OCCLUSION [None]
  - PAIN [None]
  - PRURITUS [None]
  - SCAB [None]
  - SCAR [None]
  - SKIN ULCER [None]
  - SKIN ULCER HAEMORRHAGE [None]
